FAERS Safety Report 19275029 (Version 7)
Quarter: 2021Q3

REPORT INFORMATION
  Report Type: Spontaneous
  Country: US (occurrence: US)
  Receive Date: 20210519
  Receipt Date: 20210923
  Transmission Date: 20211014
  Serious: Yes (Other)
  Sender: FDA-Public Use
  Company Number: US-BAYER-2021-143212

PATIENT
  Age: 3 Year
  Sex: Male

DRUGS (9)
  1. KOGENATE FS [Suspect]
     Active Substance: ANTIHEMOPHILIC FACTOR, HUMAN RECOMBINANT
     Dosage: 1 DF, ONCE (BLEEDING PROPHYLAXIS)
     Route: 042
     Dates: start: 20210516, end: 20210516
  2. KOGENATE FS [Suspect]
     Active Substance: ANTIHEMOPHILIC FACTOR, HUMAN RECOMBINANT
     Dosage: WAS GIVEN A MAJOR BLEED FOR BRUISE ON HEAD WITHIN 3 HOURS OF BRUISE APPEARING
     Dates: start: 20210728
  3. KOGENATE FS [Suspect]
     Active Substance: ANTIHEMOPHILIC FACTOR, HUMAN RECOMBINANT
     Dosage: 800 U, TID, FOT THE LIP BLEEDING TREATMENT
     Route: 042
  4. KOGENATE FS [Suspect]
     Active Substance: ANTIHEMOPHILIC FACTOR, HUMAN RECOMBINANT
     Dosage: 1 DF, ONCE (FOR THE HEAD INJURY TREATMENT)
     Route: 042
     Dates: start: 20210911, end: 20210911
  5. KOGENATE FS [Suspect]
     Active Substance: ANTIHEMOPHILIC FACTOR, HUMAN RECOMBINANT
     Dosage: 1 DF, ONCE (FOR THE HEAD INJURY TREATMENT)
     Route: 042
     Dates: start: 20210904, end: 20210904
  6. KOGENATE FS [Suspect]
     Active Substance: ANTIHEMOPHILIC FACTOR, HUMAN RECOMBINANT
     Dosage: 800 U, UNK
     Route: 042
  7. KOGENATE FS [Suspect]
     Active Substance: ANTIHEMOPHILIC FACTOR, HUMAN RECOMBINANT
     Dosage: 1 DF, ONCE (BLEEDING PROPHYLAXIS)
     Route: 042
     Dates: start: 20210515, end: 20210515
  8. KOGENATE FS [Suspect]
     Active Substance: ANTIHEMOPHILIC FACTOR, HUMAN RECOMBINANT
     Dosage: GIVEN A MAJOR BLEED DOSE FOR HEAD INJURY EVEN THOUGH THERE WERE NO SIGNS OF A BLEED
     Route: 042
     Dates: start: 20210613, end: 20210613
  9. KOGENATE FS [Suspect]
     Active Substance: ANTIHEMOPHILIC FACTOR, HUMAN RECOMBINANT
     Dosage: 800 IU, FOR THE HEAD INJURY TREATMENT
     Route: 042

REACTIONS (9)
  - Head injury [None]
  - Head injury [None]
  - Traumatic haemorrhage [None]
  - Fall [Recovered/Resolved]
  - Head injury [None]
  - Head injury [Recovered/Resolved]
  - Pyrexia [Recovered/Resolved]
  - Head injury [Recovered/Resolved]
  - Contusion [Recovered/Resolved]

NARRATIVE: CASE EVENT DATE: 20210515
